FAERS Safety Report 9109132 (Version 1)
Quarter: 2013Q1

REPORT INFORMATION
  Report Type: Spontaneous
  Country: US (occurrence: US)
  Receive Date: 20130222
  Receipt Date: 20130222
  Transmission Date: 20140127
  Serious: Yes (Death)
  Sender: FDA-Public Use
  Company Number: US-AMGEN-USASP2013011154

PATIENT
  Age: 83 Year
  Sex: Male

DRUGS (7)
  1. ENBREL [Suspect]
     Indication: PRODUCT USED FOR UNKNOWN INDICATION
     Dosage: 50 MG, QWK
     Route: 058
  2. METHOTREXATE [Concomitant]
     Dosage: 2.5 MG, UNK
  3. FOLIC ACID [Concomitant]
     Dosage: 1 MG, UNK
     Dates: end: 20130212
  4. VYTORIN [Concomitant]
     Dosage: 10 MG, UNK
  5. DOXAZOSIN [Concomitant]
     Dosage: 8 MG, UNK
  6. FINASTERIDE [Concomitant]
     Dosage: UNK
  7. ALPRAZOLAM [Concomitant]
     Dosage: 0.25 MG, UNK

REACTIONS (1)
  - Death [Fatal]
